FAERS Safety Report 8272109-6 (Version None)
Quarter: 2012Q2

REPORT INFORMATION
  Report Type: 
  Country: None (occurrence: None)
  Receive Date: 20120410
  Receipt Date: 20120330
  Transmission Date: 20120825
  Serious: Yes (Hospitalization, Disabling, Other)
  Sender: FDA-Public Use
  Company Number: PHHY2011JP59489

PATIENT
  Sex: Female

DRUGS (2)
  1. FARESTON [Concomitant]
     Dosage: 40 MG, UNK
     Route: 048
     Dates: start: 20050601
  2. AREDIA [Suspect]
     Indication: METASTASES TO BONE
     Dosage: UNK UKN, UNK
     Route: 041
     Dates: start: 20030501, end: 20110510

REACTIONS (3)
  - FALL [None]
  - FEMUR FRACTURE [None]
  - BONE PAIN [None]
